FAERS Safety Report 9128007 (Version 1)
Quarter: 2013Q1

REPORT INFORMATION
  Report Type: Spontaneous
  Country: TR (occurrence: TR)
  Receive Date: 20130228
  Receipt Date: 20130228
  Transmission Date: 20140127
  Serious: Yes (Other)
  Sender: FDA-Public Use
  Company Number: TR-JNJFOC-20130211469

PATIENT
  Sex: 0

DRUGS (1)
  1. DOXORUBICIN HYDROCHLORIDE [Suspect]
     Indication: NEOPLASM
     Route: 042

REACTIONS (3)
  - Carotid intima-media thickness increased [Unknown]
  - Endothelial dysfunction [Unknown]
  - Off label use [Unknown]
